FAERS Safety Report 5061128-9 (Version None)
Quarter: 2006Q3

REPORT INFORMATION
  Report Type: 
  Country: None (occurrence: None)
  Receive Date: 20060725
  Receipt Date: 20060720
  Transmission Date: 20061208
  Serious: Yes (Death)
  Sender: FDA-Public Use
  Company Number: FR-SANOFI-SYNTHELABO-F01200601693

PATIENT
  Sex: Male

DRUGS (8)
  1. MORPHINE [Concomitant]
     Dosage: UNK
     Dates: start: 20060515
  2. TIMBUTINE [Concomitant]
     Dosage: UNK
  3. TIZAPARINE [Concomitant]
     Dosage: UNK
  4. NORFLOXACIN [Concomitant]
     Indication: INFECTION
     Dosage: UNK
  5. PROPRANOLOL [Concomitant]
     Indication: VARICES OESOPHAGEAL
     Dosage: UNK
     Dates: start: 20050701
  6. GEMCITABINE [Suspect]
     Indication: PANCREATIC CARCINOMA
     Route: 042
     Dates: start: 20060313
  7. ERBITUX [Suspect]
     Indication: COLORECTAL CANCER
     Dosage: 400 MG/M2 THE FIRST WEEK THEN 250 MG/M2 EACH WEEK
     Route: 042
     Dates: start: 20060313, end: 20060516
  8. OXALIPLATIN [Suspect]
     Indication: COLORECTAL CANCER
     Route: 042
     Dates: start: 20060314, end: 20060510

REACTIONS (2)
  - DEATH [None]
  - ENCEPHALOPATHY [None]
